FAERS Safety Report 20300112 (Version 1)
Quarter: 2022Q1

REPORT INFORMATION
  Report Type: Spontaneous
  Country: IT (occurrence: IT)
  Receive Date: 20220105
  Receipt Date: 20220105
  Transmission Date: 20220423
  Serious: Yes (Other)
  Sender: FDA-Public Use
  Company Number: IT-Gedeon Richter Plc.-2021_GR_010522

PATIENT
  Sex: Male

DRUGS (2)
  1. CARIPRAZINE HYDROCHLORIDE [Suspect]
     Active Substance: CARIPRAZINE HYDROCHLORIDE
     Indication: Schizoaffective disorder
     Dosage: 4.5 MG, QD
  2. CARIPRAZINE HYDROCHLORIDE [Suspect]
     Active Substance: CARIPRAZINE HYDROCHLORIDE
     Dosage: FROM 1.5MG/ DAY UP TO 6 MG/ DAY

REACTIONS (3)
  - Hallucination [Not Recovered/Not Resolved]
  - Restlessness [Unknown]
  - Off label use [Unknown]
